FAERS Safety Report 22129037 (Version 2)
Quarter: 2023Q4

REPORT INFORMATION
  Report Type: Spontaneous
  Country: GE (occurrence: GE)
  Receive Date: 20230323
  Receipt Date: 20231213
  Transmission Date: 20240110
  Serious: Yes (Death, Life-Threatening, Hospitalization, Other)
  Sender: FDA-Public Use
  Company Number: US-ALKEM LABORATORIES LIMITED-US-ALKEM-2022-14363

PATIENT
  Age: 7 Month
  Sex: Male

DRUGS (3)
  1. VIGABATRIN [Suspect]
     Active Substance: VIGABATRIN
     Indication: Infantile spasms
     Dosage: UNK
     Route: 065
  2. VIGABATRIN [Suspect]
     Active Substance: VIGABATRIN
     Dosage: 150 MILLIGRAM/KILOGRAM, QD
     Route: 065
  3. VIGABATRIN [Suspect]
     Active Substance: VIGABATRIN
     Dosage: UNK (RESTARTED COMBINATION DOSE)
     Route: 065

REACTIONS (9)
  - Respiratory distress [Not Recovered/Not Resolved]
  - Toxicity to various agents [Fatal]
  - Bradycardia [Not Recovered/Not Resolved]
  - Encephalopathy [Fatal]
  - Chorea [Not Recovered/Not Resolved]
  - Hypertension [Not Recovered/Not Resolved]
  - Magnetic resonance imaging head abnormal [Not Recovered/Not Resolved]
  - Dyskinesia [Not Recovered/Not Resolved]
  - Somnolence [Not Recovered/Not Resolved]
